FAERS Safety Report 7923302-0 (Version None)
Quarter: 2011Q4

REPORT INFORMATION
  Report Type: 
  Country: None (occurrence: None)
  Receive Date: 20111117
  Receipt Date: 20110201
  Transmission Date: 20120403
  Serious: No
  Sender: FDA-Public Use
  Company Number: US-AMGEN-USASP2011006056

PATIENT
  Age: 69 Year
  Sex: Female

DRUGS (2)
  1. ENBREL [Suspect]
     Indication: FIBROMYALGIA
  2. ENBREL [Suspect]
     Indication: RHEUMATOID ARTHRITIS
     Dates: start: 20101217

REACTIONS (6)
  - BONE PAIN [None]
  - LOCAL SWELLING [None]
  - VISION BLURRED [None]
  - CHEST PAIN [None]
  - PAIN IN EXTREMITY [None]
  - HYPOACUSIS [None]
